FAERS Safety Report 17155629 (Version 1)
Quarter: 2019Q4

REPORT INFORMATION
  Report Type: Spontaneous
  Country: US (occurrence: US)
  Receive Date: 20191215
  Receipt Date: 20191215
  Transmission Date: 20200122
  Serious: Yes (Other)
  Sender: FDA-Public Use
  Company Number: US-SA-2019SA343022

PATIENT
  Age: 69 Year
  Sex: Male

DRUGS (1)
  1. TOUJEO [Suspect]
     Active Substance: INSULIN GLARGINE
     Dosage: 50 U, BID
     Route: 065

REACTIONS (5)
  - Retinal tear [Unknown]
  - Visual impairment [Unknown]
  - Disability [Unknown]
  - Cataract [Unknown]
  - Inappropriate schedule of product administration [Unknown]
